FAERS Safety Report 12422498 (Version 1)
Quarter: 2016Q2

REPORT INFORMATION
  Report Type: Spontaneous
  Country: US (occurrence: US)
  Receive Date: 20160601
  Receipt Date: 20160601
  Transmission Date: 20160815
  Serious: No
  Sender: FDA-Public Use
  Company Number: US-BRISTOL-MYERS SQUIBB COMPANY-BMS-2016-042136

PATIENT
  Age: 64 Year
  Sex: Male

DRUGS (1)
  1. EMPLICITI [Suspect]
     Active Substance: ELOTUZUMAB
     Indication: PLASMA CELL MYELOMA
     Dosage: EIGHT
     Route: 042

REACTIONS (5)
  - Hallucination [Unknown]
  - Aggression [Unknown]
  - Irritability [Unknown]
  - Speech disorder [Unknown]
  - Pyrexia [Unknown]
